FAERS Safety Report 4765828-7 (Version None)
Quarter: 2005Q3

REPORT INFORMATION
  Report Type: 
  Country: None (occurrence: None)
  Receive Date: 20050906
  Receipt Date: 20050822
  Transmission Date: 20060218
  Serious: Yes (Death, Hospitalization)
  Sender: FDA-Public Use
  Company Number: 02100-JPN-05-0389

PATIENT
  Age: 66 Year
  Sex: Male

DRUGS (2)
  1. CILOSTAZOL [Suspect]
     Indication: CEREBRAL INFARCTION
     Dosage: ONE OF 200 MG OR 100 MG, ORAL
     Route: 048
     Dates: start: 20041216, end: 20050811
  2. ASPIRIN [Suspect]

REACTIONS (1)
  - CEREBRAL HAEMORRHAGE [None]
